FAERS Safety Report 5710517-5 (Version None)
Quarter: 2008Q2

REPORT INFORMATION
  Report Type: 
  Country: None (occurrence: None)
  Receive Date: 20080415
  Receipt Date: 20080331
  Transmission Date: 20081010
  Serious: Yes (Other)
  Sender: FDA-Public Use
  Company Number: 2008PV034114

PATIENT
  Age: 54 Year
  Sex: Female
  Weight: 108.8633 kg

DRUGS (8)
  1. SYMLIN [Suspect]
     Indication: TYPE 2 DIABETES MELLITUS
     Dosage: 120 MCG; TID; SC; SC
     Route: 058
     Dates: start: 20071101, end: 20071101
  2. SYMLIN [Suspect]
     Indication: TYPE 2 DIABETES MELLITUS
     Dosage: 120 MCG; TID; SC; SC
     Route: 058
     Dates: start: 20071101
  3. LANTUS [Concomitant]
  4. DIOVAN [Concomitant]
  5. HYDROCHLOROTHIAZIDE [Concomitant]
  6. MONOPRIL [Concomitant]
  7. TOPROL-XL [Concomitant]
  8. HUMALOG [Concomitant]

REACTIONS (3)
  - BLOOD POTASSIUM DECREASED [None]
  - HYPOGLYCAEMIA [None]
  - TREMOR [None]
